FAERS Safety Report 4979091-5 (Version None)
Quarter: 2006Q2

REPORT INFORMATION
  Report Type: 
  Country: None (occurrence: None)
  Receive Date: 20060421
  Receipt Date: 20060414
  Transmission Date: 20061013
  Serious: Yes (Other)
  Sender: FDA-Public Use
  Company Number: FR-BRISTOL-MYERS SQUIBB COMPANY-13347141

PATIENT
  Age: 71 Year
  Sex: Female

DRUGS (2)
  1. SINEMET CR [Suspect]
     Indication: PARKINSON'S DISEASE
     Route: 048
  2. LIPANTHYL [Concomitant]
     Indication: HYPERCHOLESTEROLAEMIA

REACTIONS (1)
  - GLAUCOMA [None]
